FAERS Safety Report 4948783-6 (Version None)
Quarter: 2006Q1

REPORT INFORMATION
  Report Type: 
  Country: None (occurrence: None)
  Receive Date: 20060321
  Receipt Date: 20060314
  Transmission Date: 20060701
  Serious: Yes (Disabling)
  Sender: FDA-Public Use
  Company Number: JP-BOEHRINGER INGELHEIM PHARMACEUTICALS, INC.-2006-BP-02963NB

PATIENT
  Sex: Female

DRUGS (4)
  1. MICARDIS [Suspect]
     Indication: ESSENTIAL HYPERTENSION
     Route: 048
     Dates: start: 20050126
  2. ADALAT [Concomitant]
     Indication: ESSENTIAL HYPERTENSION
     Route: 048
  3. LIPITOR (ATORVASATIN CALCIUM) [Concomitant]
     Indication: HYPERLIPIDAEMIA
     Route: 048
  4. ACTOS [Concomitant]
     Indication: DIABETES MELLITUS
     Route: 048

REACTIONS (1)
  - CEREBRAL INFARCTION [None]
